FAERS Safety Report 4285928-8 (Version None)
Quarter: 2004Q1

REPORT INFORMATION
  Report Type: 
  Country: None (occurrence: None)
  Receive Date: 20040205
  Receipt Date: 20040126
  Transmission Date: 20041129
  Serious: Yes (Hospitalization, Other)
  Sender: FDA-Public Use
  Company Number: JP-GLAXOSMITHKLINE-B0321054A

PATIENT
  Age: 9 Year
  Sex: Male
  Weight: 35 kg

DRUGS (1)
  1. MELPHALAN [Suspect]
     Indication: STEM CELL TRANSPLANT
     Dosage: 67MGM2 PER DAY
     Route: 042
     Dates: start: 20030130, end: 20030201

REACTIONS (5)
  - C-REACTIVE PROTEIN INCREASED [None]
  - HEART RATE INCREASED [None]
  - PYREXIA [None]
  - SEPSIS [None]
  - VOMITING [None]
